FAERS Safety Report 5257973-7 (Version None)
Quarter: 2007Q1

REPORT INFORMATION
  Report Type: 
  Country: None (occurrence: None)
  Receive Date: 20070307
  Receipt Date: 20061120
  Transmission Date: 20070707
  Serious: No
  Sender: FDA-Public Use
  Company Number: US-GLAXOSMITHKLINE-A0628018A

PATIENT

DRUGS (2)
  1. REQUIP [Suspect]
     Dates: start: 20060101
  2. CYMBALTA [Suspect]
     Dates: start: 20060101

REACTIONS (1)
  - NIGHTMARE [None]
